APPROVED DRUG PRODUCT: SIMVASTATIN
Active Ingredient: SIMVASTATIN
Strength: 20MG
Dosage Form/Route: TABLET, ORALLY DISINTEGRATING;ORAL
Application: N021961 | Product #002
Applicant: SYNTHON PHARMACEUTICALS LTD
Approved: Oct 9, 2007 | RLD: Yes | RS: No | Type: DISCN